FAERS Safety Report 23172550 (Version 2)
Quarter: 2023Q4

REPORT INFORMATION
  Report Type: Report from Study
  Country: US (occurrence: US)
  Receive Date: 20231110
  Receipt Date: 20231123
  Transmission Date: 20240109
  Serious: Yes (Hospitalization, Other)
  Sender: FDA-Public Use
  Company Number: US-002147023-NVSC2023US198351

PATIENT
  Age: 71 Year
  Sex: Male
  Weight: 68.9 kg

DRUGS (5)
  1. LAMPRENE [Suspect]
     Active Substance: CLOFAZIMINE
     Indication: Mycobacterium abscessus infection
     Dosage: 100 MG, QD
     Route: 048
     Dates: start: 20230712, end: 20231010
  2. LAMPRENE [Suspect]
     Active Substance: CLOFAZIMINE
     Dosage: 100 MG
     Route: 048
     Dates: start: 20230713, end: 20231006
  3. AMIKACIN [Concomitant]
     Active Substance: AMIKACIN
     Indication: Mycobacterium abscessus infection
     Dosage: 1300 MG, TIW
     Route: 042
     Dates: start: 20230530, end: 20231006
  4. IMIPENEM [Concomitant]
     Active Substance: IMIPENEM
     Indication: Mycobacterium abscessus infection
     Dosage: 1000 MG, BID
     Route: 065
     Dates: start: 20230530, end: 20231006
  5. CEFOXITIN [Concomitant]
     Active Substance: CEFOXITIN SODIUM
     Indication: Mycobacterium abscessus infection
     Dosage: 4 G, Q12H
     Route: 065
     Dates: start: 20230619, end: 20231006

REACTIONS (15)
  - Pneumonia [Recovered/Resolved]
  - Pyrexia [Recovered/Resolved]
  - Respiratory symptom [Recovered/Resolved]
  - Dyspnoea [Not Recovered/Not Resolved]
  - Fatigue [Recovered/Resolved]
  - Appetite disorder [Recovered/Resolved]
  - Acute kidney injury [Recovered/Resolved]
  - Blood creatinine increased [Unknown]
  - Clostridium difficile infection [Recovered/Resolved]
  - Lung disorder [Not Recovered/Not Resolved]
  - Disease progression [Not Recovered/Not Resolved]
  - Diarrhoea [Recovered/Resolved]
  - Skin hyperpigmentation [Not Recovered/Not Resolved]
  - Vision blurred [Recovered/Resolved]
  - Dry skin [Not Recovered/Not Resolved]

NARRATIVE: CASE EVENT DATE: 20230804
